FAERS Safety Report 7499383-8 (Version None)
Quarter: 2011Q2

REPORT INFORMATION
  Report Type: 
  Country: None (occurrence: None)
  Receive Date: 20110516
  Receipt Date: 20110502
  Transmission Date: 20111010
  Serious: Yes (Other)
  Sender: FDA-Public Use
  Company Number: 2011SP020093

PATIENT
  Age: 38 Year
  Sex: Female

DRUGS (3)
  1. PEG-INTRON [Suspect]
     Indication: HEPATITIS
     Dates: start: 20100628
  2. REBETOL [Suspect]
     Indication: HEPATITIS
     Dates: start: 20100628
  3. LITHIUM CARBONATE [Concomitant]

REACTIONS (1)
  - GASTROENTERITIS VIRAL [None]
